FAERS Safety Report 24223297 (Version 1)
Quarter: 2024Q3

REPORT INFORMATION
  Report Type: Spontaneous
  Country: US (occurrence: US)
  Receive Date: 20240819
  Receipt Date: 20240819
  Transmission Date: 20241016
  Serious: No
  Sender: ANI
  Company Number: US-ANIPHARMA-2023-US-042865

PATIENT
  Age: 78 Year
  Sex: Female
  Weight: 55.34 kg

DRUGS (4)
  1. ARIMIDEX [Suspect]
     Active Substance: ANASTROZOLE
     Indication: Breast cancer
     Dosage: 1 TABLET ONCE A DAY
     Route: 048
     Dates: start: 20230721, end: 20230902
  2. Bone Up supplement [Concomitant]
     Route: 048
  3. MAGNESIUM GLYCINATE [Concomitant]
     Active Substance: MAGNESIUM GLYCINATE
     Route: 048
  4. Vitamin D+ K2 [Concomitant]
     Route: 048

REACTIONS (6)
  - Insomnia [Recovering/Resolving]
  - Amnesia [Recovering/Resolving]
  - Gastrointestinal sounds abnormal [Recovering/Resolving]
  - Brain fog [Recovering/Resolving]
  - Abdominal distension [Not Recovered/Not Resolved]
  - Condition aggravated [Recovering/Resolving]

NARRATIVE: CASE EVENT DATE: 20230724
